FAERS Safety Report 11201428 (Version 1)
Quarter: 2015Q2

REPORT INFORMATION
  Report Type: Spontaneous
  Country: BR (occurrence: BR)
  Receive Date: 20150619
  Receipt Date: 20150619
  Transmission Date: 20150821
  Serious: Yes (Other)
  Sender: FDA-Public Use
  Company Number: BR-PFIZER INC-2015199335

PATIENT
  Age: 2 Year
  Sex: Male
  Weight: 46 kg

DRUGS (6)
  1. ATROPINE [Concomitant]
     Active Substance: ATROPINE
     Indication: GLAUCOMA
     Dosage: UNK
     Dates: start: 2009
  2. AZOPT [Concomitant]
     Active Substance: BRINZOLAMIDE
     Indication: GLAUCOMA
     Dosage: UNK
     Dates: start: 2009
  3. COSOPT [Concomitant]
     Active Substance: DORZOLAMIDE HYDROCHLORIDE\TIMOLOL MALEATE
     Indication: GLAUCOMA
     Dosage: UNK, 3X/DAY
     Dates: start: 2009
  4. XALATAN [Suspect]
     Active Substance: LATANOPROST
     Indication: GLAUCOMA
     Dosage: ONE DROP IN EACH EYE 1 OR 2 TIMES PER DAY
     Route: 047
     Dates: start: 2009
  5. VIGADEXA [Concomitant]
     Active Substance: DEXAMETHASONE SODIUM PHOSPHATE\MOXIFLOXACIN HYDROCHLORIDE
     Indication: GLAUCOMA
     Dosage: 1 GTT, EVERY 3 HOURS
     Dates: start: 2009
  6. XALACOM [Suspect]
     Active Substance: LATANOPROST\TIMOLOL MALEATE
     Indication: GLAUCOMA
     Dosage: ONE DROP IN EACH EYE 1 OR 2 TIMES PER DAY
     Route: 047
     Dates: start: 2009

REACTIONS (4)
  - Intraocular pressure increased [Unknown]
  - Product use issue [Not Recovered/Not Resolved]
  - Eye disorder [Unknown]
  - Inappropriate schedule of drug administration [Not Recovered/Not Resolved]

NARRATIVE: CASE EVENT DATE: 2009
